FAERS Safety Report 7500201-X (Version None)
Quarter: 2011Q2

REPORT INFORMATION
  Report Type: 
  Country: None (occurrence: None)
  Receive Date: 20110524
  Receipt Date: 20100419
  Transmission Date: 20111010
  Serious: No
  Sender: FDA-Public Use
  Company Number: US-NOVEN-ALL1-2010-02308

PATIENT

DRUGS (3)
  1. ZOLOFT [Concomitant]
     Dosage: 200 MG, UNKNOWN
     Route: 048
  2. DAYTRANA [Suspect]
     Dosage: 30 MG, 1X/DAY:QD
     Route: 062
  3. GABAPENTIN [Concomitant]
     Dosage: 300 MG, UNKNOWN
     Route: 048

REACTIONS (1)
  - APPLICATION SITE PAIN [None]
